FAERS Safety Report 6453922-4 (Version None)
Quarter: 2009Q4

REPORT INFORMATION
  Report Type: 
  Country: None (occurrence: None)
  Receive Date: 20091124
  Receipt Date: 20091116
  Transmission Date: 20100525
  Serious: Yes (Hospitalization, Other)
  Sender: FDA-Public Use
  Company Number: JP-PFIZER INC-2009286408

PATIENT
  Age: 89 Year
  Sex: Female

DRUGS (3)
  1. ZOLOFT [Suspect]
     Indication: DEPRESSION
     Dosage: UNK
     Route: 048
     Dates: start: 20090802, end: 20090910
  2. TETRAMIDE [Suspect]
     Indication: INSOMNIA
     Dosage: UNK
     Route: 048
     Dates: start: 20090802
  3. ANAFRANIL [Suspect]
     Dosage: UNK
     Route: 042
     Dates: start: 20090905

REACTIONS (4)
  - ALTERED STATE OF CONSCIOUSNESS [None]
  - DRUG INEFFECTIVE [None]
  - INDIFFERENCE [None]
  - RESTLESSNESS [None]
